FAERS Safety Report 4468967-3 (Version None)
Quarter: 2004Q4

REPORT INFORMATION
  Report Type: 
  Country: None (occurrence: None)
  Receive Date: 20041005
  Receipt Date: 20040927
  Transmission Date: 20050328
  Serious: Yes (Death, Hospitalization)
  Sender: FDA-Public Use
  Company Number: F01200402921

PATIENT
  Age: 74 Year
  Sex: Male

DRUGS (8)
  1. (OXALIPLATIN) - SOLUTION - UNIT DOSE : UNKNOWN [Suspect]
     Indication: GASTRIC CANCER
     Dosage: 130 MG/M2 Q3W, INTRAVENOUS NOS
     Route: 042
     Dates: start: 20040817, end: 20040817
  2. (OXALIPLATIN) - SOLUTION - UNIT DOSE : UNKNOWN [Suspect]
     Indication: OESOPHAGEAL CARCINOMA
     Dosage: 130 MG/M2 Q3W, INTRAVENOUS NOS
     Route: 042
     Dates: start: 20040817, end: 20040817
  3. (CAPECITABINE) - TABLET - UNIT DOSE : UNKNOWN [Suspect]
     Dosage: 500 MG/M2
     Route: 048
     Dates: start: 20040817, end: 20040821
  4. EPIRUBICIN [Suspect]
     Dosage: 50 MG/M2 Q3W, INTRAVENOUS BOLUS; A FEW MINS
     Route: 040
     Dates: start: 20040817, end: 20040817
  5. LANSOPRAZOLE [Concomitant]
  6. MAXALON(METOCLOPRAMIDE) [Concomitant]
  7. ZOFRAN [Concomitant]
  8. LEVOTHYROXINE SODIUM [Concomitant]

REACTIONS (5)
  - DIARRHOEA [None]
  - GENERAL PHYSICAL HEALTH DETERIORATION [None]
  - NAUSEA [None]
  - NEUTROPENIA [None]
  - VOMITING [None]
